FAERS Safety Report 9665535 (Version 1)
Quarter: 2013Q4

REPORT INFORMATION
  Report Type: Spontaneous
  Country: US (occurrence: None)
  Receive Date: 20131031
  Receipt Date: 20131031
  Transmission Date: 20140711
  Serious: Yes (Hospitalization)
  Sender: FDA-Public Use
  Company Number: None

PATIENT
  Age: 67 Year
  Sex: Female
  Weight: 72.6 kg

DRUGS (17)
  1. OMEPRAZOLE [Suspect]
     Route: 048
     Dates: start: 20110719
  2. RANITIDINE [Concomitant]
  3. ZOLPIDEM [Concomitant]
  4. LEVOFLOXACIN [Concomitant]
  5. CLONIDINE [Concomitant]
  6. ASPIRIN [Concomitant]
  7. WARFARIN [Concomitant]
  8. CYCLOBENZAPRINE [Concomitant]
  9. GLIPIZIDE [Concomitant]
  10. LANTUS [Concomitant]
  11. ATORVASTATIN [Concomitant]
  12. METFORMIN [Concomitant]
  13. GABAPENTIN [Concomitant]
  14. NIASPAN [Concomitant]
  15. PERCOCET [Concomitant]
  16. METOPROLOL [Concomitant]
  17. HYDROCHLOROTHIAZIDE [Concomitant]

REACTIONS (5)
  - Hypocalcaemia [None]
  - Hypomagnesaemia [None]
  - Muscle spasms [None]
  - Muscle spasms [None]
  - Paraesthesia [None]
